FAERS Safety Report 16732781 (Version 1)
Quarter: 2019Q3

REPORT INFORMATION
  Report Type: Spontaneous
  Country: US (occurrence: US)
  Receive Date: 20190823
  Receipt Date: 20190823
  Transmission Date: 20191005
  Serious: No
  Sender: FDA-Public Use
  Company Number: US-009507513-1908USA002583

PATIENT
  Age: 26 Year
  Sex: Female

DRUGS (2)
  1. IMPLANON [Suspect]
     Active Substance: ETONOGESTREL
     Dosage: UNK
     Route: 059
     Dates: start: 2016, end: 2019
  2. NEXPLANON [Suspect]
     Active Substance: ETONOGESTREL
     Dosage: SINGLE IMPLANT
     Route: 059
     Dates: start: 2019

REACTIONS (2)
  - Implant site rash [Unknown]
  - Implant site pruritus [Unknown]

NARRATIVE: CASE EVENT DATE: 2019
